FAERS Safety Report 9040889 (Version 1)
Quarter: 2013Q1

REPORT INFORMATION
  Report Type: Report from Study
  Country: US (occurrence: US)
  Receive Date: 20130129
  Receipt Date: 20130129
  Transmission Date: 20140127
  Serious: No
  Sender: FDA-Public Use
  Company Number: US-ABBOTT-12P-163-0899784-00

PATIENT
  Age: 76 Year
  Sex: Female

DRUGS (9)
  1. HUMIRA 40 MG/0.8 ML PEN [Suspect]
     Indication: RHEUMATOID ARTHRITIS
     Dates: start: 201112
  2. HYDROCORTISONE [Concomitant]
     Indication: PULMONARY FIBROSIS
  3. ATACAND [Concomitant]
     Indication: HYPERTENSION
  4. NORVASC [Concomitant]
     Indication: HYPERTENSION
  5. SPIRIVA [Concomitant]
     Indication: PRODUCT USED FOR UNKNOWN INDICATION
  6. ZYZAL [Concomitant]
     Indication: SINUS DISORDER
  7. TRAZADONE [Concomitant]
     Indication: INSOMNIA
     Dosage: 2 TABS
  8. STERTRALINE [Concomitant]
     Indication: ANXIETY
  9. LASIX [Concomitant]
     Indication: PRODUCT USED FOR UNKNOWN INDICATION

REACTIONS (2)
  - Diarrhoea [Not Recovered/Not Resolved]
  - Abdominal pain [Not Recovered/Not Resolved]
